FAERS Safety Report 20208929 (Version 2)
Quarter: 2023Q2

REPORT INFORMATION
  Report Type: Report from Study
  Country: CZ (occurrence: CZ)
  Receive Date: 20211220
  Receipt Date: 20230407
  Transmission Date: 20230722
  Serious: Yes (Death, Life-Threatening, Hospitalization, Other)
  Sender: FDA-Public Use
  Company Number: CZ-MYLANLABS-2021M1094121

PATIENT
  Age: 49 Year
  Sex: Male

DRUGS (1)
  1. HULIO [Suspect]
     Active Substance: ADALIMUMAB-FKJP
     Indication: Psoriatic arthropathy
     Dosage: 40 MILLIGRAM, BIMONTHLY
     Route: 058
     Dates: start: 20191007, end: 20210802

REACTIONS (4)
  - Glioblastoma [Fatal]
  - Circulatory collapse [Recovering/Resolving]
  - Cerebral haematoma [Recovering/Resolving]
  - Aphasia [Not Recovered/Not Resolved]

NARRATIVE: CASE EVENT DATE: 20210806
